FAERS Safety Report 7096168-1 (Version None)
Quarter: 2010Q4

REPORT INFORMATION
  Report Type: 
  Country: None (occurrence: None)
  Receive Date: 20101111
  Receipt Date: 20100129
  Transmission Date: 20110411
  Serious: No
  Sender: FDA-Public Use
  Company Number: US-BAUSCH-2010BL006328

PATIENT

DRUGS (1)
  1. MIOCHOL-E [Suspect]
     Indication: CATARACT OPERATION
     Route: 031

REACTIONS (1)
  - INTRAOCULAR PRESSURE INCREASED [None]
